FAERS Safety Report 9630910 (Version 1)
Quarter: 2013Q4

REPORT INFORMATION
  Report Type: Spontaneous
  Country: US (occurrence: None)
  Receive Date: 20131016
  Receipt Date: 20131016
  Transmission Date: 20140711
  Serious: Yes (Hospitalization)
  Sender: FDA-Public Use
  Company Number: AUR-APL-2013-08397

PATIENT
  Age: 30 Year
  Sex: Female

DRUGS (3)
  1. SERTRALINE (SERTRALINE) [Suspect]
     Indication: MAJOR DEPRESSION
     Dosage: (50 MG, 1 IN 1 D) UNKNOWN
  2. ZIPRASIDONE [Suspect]
     Indication: MAJOR DEPRESSION
     Dosage: 40 MG, 1 D, UNKNOWN
  3. PAROXETINE [Concomitant]

REACTIONS (6)
  - Serotonin syndrome [None]
  - Anxiety [None]
  - Headache [None]
  - Myoclonus [None]
  - Sinus tachycardia [None]
  - Blood pressure increased [None]
